FAERS Safety Report 9000616 (Version 1)
Quarter: 2012Q4

REPORT INFORMATION
  Report Type: Spontaneous
  Country: GB (occurrence: None)
  Receive Date: 20121221
  Receipt Date: 20121221
  Transmission Date: 20130627
  Serious: Yes (Disabling)
  Sender: FDA-Public Use
  Company Number: AUR-APL-2012-05295

PATIENT
  Sex: Female

DRUGS (11)
  1. AMOXICILLIN [Suspect]
     Indication: CHEST INFECTION
     Route: 048
  2. PREDNISOLONE [Suspect]
     Indication: CHEST INFECTION
     Route: 048
  3. ZANTAC [Suspect]
     Indication: DRUG USE FOR UNKNOWN INDICATION
  4. BUDESONIDE AND FORMOTEROL FUMARATE (BUDESONIDE W/FORMOTEROL FUMARATE) [Concomitant]
  5. CARBOCISTEINE (CARBOCISTEINE) [Concomitant]
  6. CETIRIZINE (CETIRIZINE) [Concomitant]
  7. OLMESARTAN MEDOXOMIL (OLMESARTAN MEDOXOMIL) [Concomitant]
  8. SALBUTAMOL (SALBUTAMOL) [Concomitant]
  9. TILADE (NEDOCROMIL SODIUM) [Concomitant]
  10. TIOTROPIUM BROMIDE (TIOTROPIUM BROMIDE) [Concomitant]
  11. UNIVER (VERAPAMIL HYDROCHLORIDE) [Concomitant]

REACTIONS (7)
  - Flatulence [None]
  - Dyspepsia [None]
  - Gastrooesophageal reflux disease [None]
  - Dyspepsia [None]
  - Drug interaction [None]
  - Product substitution issue [None]
  - Product coating issue [None]
